FAERS Safety Report 4665579-3 (Version None)
Quarter: 2005Q2

REPORT INFORMATION
  Report Type: 
  Country: None (occurrence: None)
  Receive Date: 20050519
  Receipt Date: 20040527
  Transmission Date: 20051028
  Serious: No
  Sender: FDA-Public Use
  Company Number: US-BRISTOL-MYERS SQUIBB COMPANY-12599700

PATIENT
  Age: 51 Year
  Sex: Female
  Weight: 86 kg

DRUGS (2)
  1. MYCOLOG-II [Suspect]
     Indication: RASH
     Route: 061
  2. ACCUPRIL [Concomitant]

REACTIONS (3)
  - APPLICATION SITE REACTION [None]
  - BLISTER [None]
  - PRURITUS [None]
